FAERS Safety Report 8260436-8 (Version None)
Quarter: 2012Q2

REPORT INFORMATION
  Report Type: 
  Country: None (occurrence: None)
  Receive Date: 20120404
  Receipt Date: 20120327
  Transmission Date: 20120825
  Serious: Yes (Hospitalization, Other)
  Sender: FDA-Public Use
  Company Number: US-ABBOTT-12P-163-0920033-00

PATIENT
  Sex: Female
  Weight: 116.22 kg

DRUGS (7)
  1. METHOTREXATE [Concomitant]
     Indication: RHEUMATOID ARTHRITIS
  2. PLAVIX [Concomitant]
     Indication: CEREBROVASCULAR ACCIDENT
     Dates: start: 20070101
  3. HUMIRA [Suspect]
     Indication: RHEUMATOID ARTHRITIS
     Route: 058
     Dates: start: 20110601, end: 20111101
  4. ASPIRIN [Concomitant]
     Indication: CEREBROVASCULAR ACCIDENT
  5. HUMIRA [Suspect]
     Route: 058
     Dates: start: 20120101
  6. TOPAMAX [Concomitant]
     Indication: MIGRAINE
  7. JANUVIA [Concomitant]
     Indication: DIABETES MELLITUS

REACTIONS (8)
  - BACK PAIN [None]
  - CYST [None]
  - SPINAL CORD COMPRESSION [None]
  - MUSCULAR WEAKNESS [None]
  - HYPOAESTHESIA [None]
  - MASS [None]
  - PARALYSIS [None]
  - PARAESTHESIA [None]
